FAERS Safety Report 6349227-2 (Version None)
Quarter: 2009Q3

REPORT INFORMATION
  Report Type: 
  Country: None (occurrence: None)
  Receive Date: 20090911
  Receipt Date: 20090902
  Transmission Date: 20100115
  Serious: Yes (Death, Life-Threatening, Congenital Anomaly)
  Sender: FDA-Public Use
  Company Number: A0670249A

PATIENT
  Sex: Male
  Weight: 2.9 kg

DRUGS (2)
  1. PAXIL [Suspect]
     Indication: DEPRESSION
     Dosage: 10MG TWICE PER DAY
     Dates: start: 19970801, end: 19990501
  2. PROZAC [Concomitant]
     Indication: POSTPARTUM DEPRESSION
     Dosage: 20MG PER DAY
     Dates: start: 19990501, end: 20020101

REACTIONS (16)
  - ANXIETY [None]
  - ATRIAL SEPTAL DEFECT [None]
  - CARDIAC DISORDER [None]
  - CARDIAC FAILURE [None]
  - CONGENITAL CARDIOVASCULAR ANOMALY [None]
  - DEFORMITY [None]
  - DILATATION VENTRICULAR [None]
  - DRUG EXPOSURE DURING PREGNANCY [None]
  - HAEMORRHAGE INTRACRANIAL [None]
  - INTRA-UTERINE DEATH [None]
  - LEFT ATRIAL DILATATION [None]
  - PAIN [None]
  - PATENT DUCTUS ARTERIOSUS [None]
  - PERITONEAL HAEMORRHAGE [None]
  - PETECHIAE [None]
  - STILLBIRTH [None]
